FAERS Safety Report 15787724 (Version 3)
Quarter: 2019Q1

REPORT INFORMATION
  Report Type: Report from Study
  Country: None (occurrence: DE)
  Receive Date: 20190103
  Receipt Date: 20190205
  Transmission Date: 20190417
  Serious: Yes (Hospitalization)
  Sender: FDA-Public Use
  Company Number: DE-ABBVIE-19S-062-2609763-00

PATIENT
  Sex: Male

DRUGS (2)
  1. DUODOPA [Suspect]
     Active Substance: CARBIDOPA\LEVODOPA
     Indication: PARKINSON^S DISEASE
     Dosage: MD: 5.0 ML; CRD: 5.0 ML/H; CRN: 2.2 ML/H; ED: 2.0 ML
     Route: 050
     Dates: start: 20180418
  2. DUODOPA [Suspect]
     Active Substance: CARBIDOPA\LEVODOPA
     Route: 050

REACTIONS (4)
  - Fall [Unknown]
  - Urinary tract infection [Not Recovered/Not Resolved]
  - Pneumonia [Recovered/Resolved]
  - Femoral neck fracture [Not Recovered/Not Resolved]

NARRATIVE: CASE EVENT DATE: 20181228
